FAERS Safety Report 14066164 (Version 1)
Quarter: 2017Q4

REPORT INFORMATION
  Report Type: Spontaneous
  Country: CA (occurrence: CA)
  Receive Date: 20171009
  Receipt Date: 20171009
  Transmission Date: 20180321
  Serious: Yes (Hospitalization)
  Sender: FDA-Public Use
  Company Number: CA-PFIZER INC-2017210528

PATIENT
  Age: 63 Year
  Sex: Female
  Weight: 92.99 kg

DRUGS (17)
  1. CHAMPIX [Suspect]
     Active Substance: VARENICLINE TARTRATE
     Dosage: WHITE PILL, 2X/DAY
     Route: 048
     Dates: start: 20170824, end: 2017
  2. CHAMPIX [Suspect]
     Active Substance: VARENICLINE TARTRATE
     Dosage: 1 DF, 2X/DAY
     Route: 048
     Dates: start: 2017, end: 20170923
  3. CELECOXIB. [Concomitant]
     Active Substance: CELECOXIB
     Indication: MUSCULOSKELETAL CHEST PAIN
     Dosage: 100 MG, USUALLY ONCE A DAY OR TWICE A DAY
  4. AURO PANTOPRAZOLE [Concomitant]
     Dosage: 10 MG, 2X/DAY
  5. CRANBERRY. [Concomitant]
     Active Substance: CRANBERRY
     Indication: URINARY TRACT INFECTION
     Dosage: 250 MG, 1X/DAY
  6. AURO CYCLOBENZAPRINE [Concomitant]
     Indication: HYPOAESTHESIA
     Dosage: 10MG ONCE AT NIGHT BEFORE BED
  7. CHAMPIX [Suspect]
     Active Substance: VARENICLINE TARTRATE
     Indication: SMOKING CESSATION THERAPY
     Dosage: 0.5 MG, UNK
     Route: 048
     Dates: start: 201704, end: 2017
  8. CHAMPIX [Suspect]
     Active Substance: VARENICLINE TARTRATE
     Dosage: 2 DF, 1X/DAY
     Route: 048
     Dates: start: 201706, end: 201706
  9. ATORVASTATIN [Concomitant]
     Active Substance: ATORVASTATIN
     Indication: BLOOD CHOLESTEROL ABNORMAL
     Dosage: 10 MG, 1X/DAY
  10. ALENDRONATE [Concomitant]
     Active Substance: ALENDRONATE SODIUM
     Indication: OSTEOPOROSIS
     Dosage: 70 MG, WEEKLY
  11. AURO PANTOPRAZOLE [Concomitant]
     Indication: ABDOMINAL PAIN UPPER
     Dosage: 40 MG 2 CAPSULES A DAY
  12. AURO CYCLOBENZAPRINE [Concomitant]
     Indication: MYALGIA
  13. HYDROCHLOROTHIAZIDE. [Concomitant]
     Active Substance: HYDROCHLOROTHIAZIDE
     Indication: HYPERTENSION
     Dosage: 12.5 MG, 1X/DAY
  14. CHAMPIX [Suspect]
     Active Substance: VARENICLINE TARTRATE
     Dosage: 1 DF, 1X/DAY
     Route: 048
     Dates: start: 201706, end: 2017
  15. AURO CYCLOBENZAPRINE [Concomitant]
     Indication: OSTEOPOROSIS
  16. ACETAMINOPHEN. [Concomitant]
     Active Substance: ACETAMINOPHEN
     Indication: PAIN
     Dosage: 500 MG, AS NEEDED
  17. AMLODIPINE [Concomitant]
     Active Substance: AMLODIPINE BESYLATE
     Indication: HYPERTENSION
     Dosage: 2.5 MG, 1X/DAY (TABLET)

REACTIONS (9)
  - Weight decreased [Unknown]
  - Malaise [Unknown]
  - Rash pustular [Recovering/Resolving]
  - Dermatitis infected [Recovering/Resolving]
  - Rash generalised [Recovering/Resolving]
  - Rash pruritic [Recovering/Resolving]
  - Rash [Recovering/Resolving]
  - Insomnia [Not Recovered/Not Resolved]
  - Drug hypersensitivity [Recovering/Resolving]

NARRATIVE: CASE EVENT DATE: 201704
